FAERS Safety Report 11281349 (Version 1)
Quarter: 2015Q3

REPORT INFORMATION
  Report Type: Spontaneous
  Country: ES (occurrence: ES)
  Receive Date: 20150717
  Receipt Date: 20150717
  Transmission Date: 20151125
  Serious: Yes (Other)
  Sender: FDA-Public Use
  Company Number: ES-BAYER-2015-375495

PATIENT
  Age: 51 Year
  Sex: Female

DRUGS (4)
  1. ACETYLSALICYLIC ACID (} 100 MG) [Suspect]
     Active Substance: ASPIRIN
     Dosage: 500 MG, UNK
  2. CLOPIDOGREL [Suspect]
     Active Substance: CLOPIDOGREL BISULFATE
  3. INSULIN [Concomitant]
     Active Substance: INSULIN NOS
     Dosage: UNK
  4. ATORVASTATIN [Concomitant]
     Active Substance: ATORVASTATIN
     Dosage: 20 MG, UNK

REACTIONS (8)
  - Brain stem stroke [None]
  - Brain stem stroke [None]
  - Blood triglycerides increased [None]
  - Brain stem stroke [None]
  - Blood glucose increased [None]
  - Multiple-drug resistance [None]
  - Hemiparesis [None]
  - Dysarthria [None]

NARRATIVE: CASE EVENT DATE: 200610
